FAERS Safety Report 6173244-9 (Version None)
Quarter: 2009Q2

REPORT INFORMATION
  Report Type: 
  Country: None (occurrence: None)
  Receive Date: 20090424
  Receipt Date: 20090103
  Transmission Date: 20091009
  Serious: No
  Sender: FDA-Public Use
  Company Number: ALL1-2009-00006

PATIENT
  Age: 8 Year
  Sex: Female
  Weight: 24.5 kg

DRUGS (1)
  1. VYVANSE [Suspect]
     Indication: ATTENTION DEFICIT/HYPERACTIVITY DISORDER
     Dosage: 30 MG, 1X/DAY:QD, ORAL
     Route: 048
     Dates: start: 20081230

REACTIONS (4)
  - IRRITABILITY [None]
  - MOOD ALTERED [None]
  - NEGATIVISM [None]
  - REPETITIVE SPEECH [None]
